FAERS Safety Report 11696096 (Version 5)
Quarter: 2016Q1

REPORT INFORMATION
  Report Type: Spontaneous
  Country: BE (occurrence: BE)
  Receive Date: 20151104
  Receipt Date: 20160324
  Transmission Date: 20160525
  Serious: Yes (Other)
  Sender: FDA-Public Use
  Company Number: PHHY2015BE141996

PATIENT
  Age: 56 Year
  Sex: Female

DRUGS (2)
  1. FEMARA [Concomitant]
     Active Substance: LETROZOLE
     Indication: PRODUCT USED FOR UNKNOWN INDICATION
     Route: 065
  2. ZOMETA [Suspect]
     Active Substance: ZOLEDRONIC ACID
     Indication: PROPHYLAXIS
     Dosage: 4 MG, EVERY 6 MONTHS
     Route: 042
     Dates: start: 20041203, end: 20091120

REACTIONS (8)
  - Purulent discharge [Unknown]
  - Osteitis [Unknown]
  - Abscess [Unknown]
  - Osteonecrosis of jaw [Recovered/Resolved]
  - Osteonecrosis of jaw [Unknown]
  - Pain [Unknown]
  - Exposed bone in jaw [Unknown]
  - Inappropriate schedule of drug administration [Unknown]

NARRATIVE: CASE EVENT DATE: 20141119
